FAERS Safety Report 9574759 (Version 1)
Quarter: 2013Q4

REPORT INFORMATION
  Report Type: Spontaneous
  Country: CA (occurrence: CA)
  Receive Date: 20131001
  Receipt Date: 20131001
  Transmission Date: 20140711
  Serious: Yes (Hospitalization)
  Sender: FDA-Public Use
  Company Number: CA-JNJFOC-20130915546

PATIENT
  Sex: Male

DRUGS (1)
  1. RISPERDAL [Suspect]
     Indication: PRODUCT USED FOR UNKNOWN INDICATION
     Route: 048

REACTIONS (5)
  - Thrombosis [Recovered/Resolved]
  - Loss of consciousness [Recovering/Resolving]
  - Eye colour change [Recovered/Resolved]
  - Speech disorder [Unknown]
  - Dysphonia [Unknown]
